FAERS Safety Report 8264748-3 (Version None)
Quarter: 2012Q2

REPORT INFORMATION
  Report Type: 
  Country: None (occurrence: None)
  Receive Date: 20120406
  Receipt Date: 20120327
  Transmission Date: 20120825
  Serious: Yes (Death, Life-Threatening, Hospitalization)
  Sender: FDA-Public Use
  Company Number: FR-BRISTOL-MYERS SQUIBB COMPANY-16323230

PATIENT
  Age: 80 Year
  Sex: Male

DRUGS (13)
  1. ZOLPIDEM [Concomitant]
  2. GLUCOPHAGE [Suspect]
     Route: 048
     Dates: end: 20111122
  3. BEFIZAL [Suspect]
     Route: 048
     Dates: end: 20111122
  4. DAFALGAN CAPS [Concomitant]
     Dosage: 1-2 DF
  5. HEXAQUINE [Suspect]
     Route: 048
     Dates: start: 19980101, end: 20111122
  6. NEXEN [Suspect]
     Route: 048
     Dates: end: 20111122
  7. VALSARTAN  AND HYDROCHLOROTHIAZIDE [Suspect]
     Dosage: 1 DF:160/25MG
     Route: 048
     Dates: end: 20111122
  8. TRAMADOL HCL [Suspect]
     Route: 048
     Dates: end: 20111122
  9. MEDIATENSYL [Suspect]
     Route: 048
     Dates: end: 20111122
  10. AMLODIPINE BESYLATE [Concomitant]
  11. INFLUENZA VACCINE [Suspect]
     Route: 030
     Dates: start: 20111104, end: 20111104
  12. AVODART [Suspect]
     Dosage: CAPSULE
     Route: 048
     Dates: end: 20111122
  13. CARVEDILOL [Concomitant]
     Dosage: 25MG

REACTIONS (1)
  - ANAEMIA HAEMOLYTIC AUTOIMMUNE [None]
